FAERS Safety Report 13934764 (Version 2)
Quarter: 2018Q4

REPORT INFORMATION
  Report Type: Report from Study
  Country: None (occurrence: GB)
  Receive Date: 20170905
  Receipt Date: 20181019
  Transmission Date: 20190204
  Serious: Yes (Death, Hospitalization, Other)
  Sender: FDA-Public Use
  Company Number: GB-ABBVIE-17K-167-2087403-00

PATIENT
  Age: 76 Year
  Sex: Male

DRUGS (2)
  1. METHOTREXATE. [Concomitant]
     Active Substance: METHOTREXATE
     Indication: RHEUMATOID ARTHRITIS
  2. HUMIRA [Suspect]
     Active Substance: ADALIMUMAB
     Indication: RHEUMATOID ARTHRITIS
     Route: 058
     Dates: start: 20070713

REACTIONS (13)
  - Aortic stenosis [Recovered/Resolved]
  - Atrioventricular block complete [Unknown]
  - Chest pain [Unknown]
  - Mitral valve stenosis [Unknown]
  - Fall [Unknown]
  - Cardiac failure [Fatal]
  - Cardiovascular disorder [Unknown]
  - Aortic stenosis [Fatal]
  - Dizziness [Unknown]
  - Cardiac murmur [Unknown]
  - Bradycardia [Unknown]
  - Spinal pain [Unknown]
  - Appendicitis [Unknown]

NARRATIVE: CASE EVENT DATE: 20161105
